FAERS Safety Report 4372793-3 (Version None)
Quarter: 2004Q2

REPORT INFORMATION
  Report Type: 
  Country: None (occurrence: None)
  Receive Date: 20040602
  Receipt Date: 20040203
  Transmission Date: 20050107
  Serious: No
  Sender: FDA-Public Use
  Company Number: 200327855BWH

PATIENT
  Age: 75 Year
  Sex: Male

DRUGS (5)
  1. LEVITRA [Suspect]
     Indication: ERECTILE DYSFUNCTION
     Dosage: 10-20  MG, PRN, ORAL
     Route: 048
  2. ZOCOR [Concomitant]
  3. ZINAPRIL [Concomitant]
  4. TRIAMATRIN [Concomitant]
  5. NORVASC [Concomitant]

REACTIONS (1)
  - ERECTILE DYSFUNCTION [None]
